FAERS Safety Report 4278011-9 (Version None)
Quarter: 2004Q1

REPORT INFORMATION
  Report Type: 
  Country: None (occurrence: None)
  Receive Date: 20040121
  Receipt Date: 20040105
  Transmission Date: 20041129
  Serious: Yes (Hospitalization)
  Sender: FDA-Public Use
  Company Number: F01200200613

PATIENT
  Age: 72 Year
  Sex: Female

DRUGS (4)
  1. (OXALIPLATIN) - SOLUTION - 137 MG [Suspect]
     Indication: COLORECTAL CANCER METASTATIC
     Dosage: 137 MG Q2W
     Route: 042
     Dates: start: 20021120, end: 20021120
  2. (FLUOROURACIL) - SOLUTION - 1638 MG [Suspect]
     Dosage: 1638 MG Q2W
     Route: 042
     Dates: start: 20021120, end: 20021121
  3. (LEUCOVORIN) - SOLUTION - 323 MG [Suspect]
     Dosage: 323 MG Q2W
     Route: 042
     Dates: start: 20021120, end: 20021121
  4. FOSALAN(ALENDRONATE SODIUM) [Concomitant]

REACTIONS (4)
  - CATHETER SEPSIS [None]
  - INJECTION SITE INFECTION [None]
  - PYREXIA [None]
  - SEPSIS [None]
